FAERS Safety Report 23302344 (Version 1)
Quarter: 2023Q4

REPORT INFORMATION
  Report Type: Report from Study
  Country: US (occurrence: US)
  Receive Date: 20231215
  Receipt Date: 20231215
  Transmission Date: 20240110
  Serious: Yes (Other)
  Sender: FDA-Public Use
  Company Number: US-EXELIXIS-CABO-23071554

PATIENT
  Sex: Male

DRUGS (1)
  1. CABOMETYX [Suspect]
     Active Substance: CABOZANTINIB S-MALATE
     Indication: Renal cancer
     Dosage: 40 MG, QD

REACTIONS (6)
  - Seizure [Unknown]
  - Fall [Unknown]
  - Taste disorder [Unknown]
  - Skin ulcer [Unknown]
  - Fatigue [Unknown]
  - Stomatitis [Unknown]
